FAERS Safety Report 8166878-3 (Version None)
Quarter: 2012Q1

REPORT INFORMATION
  Report Type: 
  Country: None (occurrence: None)
  Receive Date: 20120103
  Receipt Date: 20111021
  Transmission Date: 20120608
  Serious: No
  Sender: FDA-Public Use
  Company Number: AE-2011-002555

PATIENT
  Age: 74 Year
  Sex: Female
  Weight: 74.8435 kg

DRUGS (10)
  1. PREMARIN [Concomitant]
  2. VITAMIN E [Concomitant]
  3. PEGINTERFERON (PEGINTERFERON ALFA-2A) [Concomitant]
  4. VITAMIN D [Concomitant]
  5. INCIVEK [Suspect]
     Dosage: 2250 MG (750 MG, 3 IN 1 D), ORAL
     Route: 048
     Dates: start: 20111020
  6. BENADRYL [Concomitant]
  7. OXYCODONE HCL [Concomitant]
  8. CALCIUM CARBONATE [Concomitant]
  9. RIBAVIRIN [Concomitant]
  10. ASCORBIC ACID [Concomitant]

REACTIONS (6)
  - THIRST [None]
  - VOMITING [None]
  - ANORECTAL DISCOMFORT [None]
  - ABDOMINAL PAIN UPPER [None]
  - SLEEP DISORDER [None]
  - DYSGEUSIA [None]
